FAERS Safety Report 21155855 (Version 2)
Quarter: 2022Q3

REPORT INFORMATION
  Report Type: Other
  Country: US (occurrence: None)
  Receive Date: 20220801
  Receipt Date: 20220809
  Transmission Date: 20221027
  Serious: Yes (Death)
  Sender: FDA-Public Use
  Company Number: US-ROCHE-3150709

PATIENT
  Age: 74 Year
  Sex: Female
  Weight: 86.260 kg

DRUGS (21)
  1. ESBRIET [Suspect]
     Active Substance: PIRFENIDONE
     Indication: Pulmonary fibrosis
     Dosage: TAKE 3 CAPSULE(S) BY MOUTH 3 TIMES A DAY AT THE SAME TIME EACH DAY
     Route: 048
  2. ACETAMINOPHEN [Concomitant]
     Active Substance: ACETAMINOPHEN
     Route: 048
  3. ALPRAZOLAM [Concomitant]
     Active Substance: ALPRAZOLAM
     Route: 048
  4. AMLODIPINE [Concomitant]
     Active Substance: AMLODIPINE BESYLATE
     Route: 048
  5. ASPIRIN [Concomitant]
     Active Substance: ASPIRIN
     Route: 048
  6. ATORVASTATIN [Concomitant]
     Active Substance: ATORVASTATIN
     Route: 048
  7. BUDESONIDE [Concomitant]
     Active Substance: BUDESONIDE
  8. CLOPIDOGREL [Concomitant]
     Active Substance: CLOPIDOGREL BISULFATE
     Route: 048
  9. EPOGEN [Concomitant]
     Active Substance: ERYTHROPOIETIN
  10. FUROSEMIDE [Concomitant]
     Active Substance: FUROSEMIDE
     Route: 048
  11. ALBUTEROL\IPRATROPIUM [Concomitant]
     Active Substance: ALBUTEROL\IPRATROPIUM
  12. LANTUS SOLOSTAR [Concomitant]
     Active Substance: INSULIN GLARGINE
     Route: 058
  13. LIDOCAINE [Concomitant]
     Active Substance: LIDOCAINE
     Route: 061
  14. NITROGLYCERIN [Concomitant]
     Active Substance: NITROGLYCERIN
     Route: 002
  15. NOVOLOG [Concomitant]
     Active Substance: INSULIN ASPART
     Route: 058
  16. PARICALCITOL [Concomitant]
     Active Substance: PARICALCITOL
     Dosage: 1 MCG
     Route: 048
  17. FERRIC POLYSACCHARIDE COMPLEX [Concomitant]
     Active Substance: FERRIC POLYSACCHARIDE COMPLEX
     Route: 048
  18. REPAGLINIDE [Concomitant]
     Active Substance: REPAGLINIDE
     Route: 048
  19. SEVELAMER CARBONATE [Concomitant]
     Active Substance: SEVELAMER CARBONATE
     Route: 048
  20. SEVELAMER [Concomitant]
     Active Substance: SEVELAMER
     Route: 048
  21. CARVEDILOL [Concomitant]
     Active Substance: CARVEDILOL
     Route: 048

REACTIONS (1)
  - Death [Fatal]

NARRATIVE: CASE EVENT DATE: 20220702
